FAERS Safety Report 16711466 (Version 3)
Quarter: 2020Q1

REPORT INFORMATION
  Report Type: Spontaneous
  Country: US (occurrence: US)
  Receive Date: 20190816
  Receipt Date: 20200213
  Transmission Date: 20200409
  Serious: No
  Sender: FDA-Public Use
  Company Number: US-SA-2019SA220618

PATIENT
  Age: 58 Year
  Sex: Female

DRUGS (22)
  1. SPIRONOLACTONE. [Concomitant]
     Active Substance: SPIRONOLACTONE
  2. IBUPROFEN. [Concomitant]
     Active Substance: IBUPROFEN
  3. BIOTIN [Concomitant]
     Active Substance: BIOTIN
  4. CYCLOBENZAPRINE. [Concomitant]
     Active Substance: CYCLOBENZAPRINE
  5. MAGNESIUM [Concomitant]
     Active Substance: MAGNESIUM
  6. TRESIBA [Concomitant]
     Active Substance: INSULIN DEGLUDEC
  7. METFORMIN [Concomitant]
     Active Substance: METFORMIN HYDROCHLORIDE
  8. BUMETANIDE. [Concomitant]
     Active Substance: BUMETANIDE
  9. TRULICITY [Concomitant]
     Active Substance: DULAGLUTIDE
  10. LANSOPRAZOLE. [Concomitant]
     Active Substance: LANSOPRAZOLE
  11. DULOXETINE. [Concomitant]
     Active Substance: DULOXETINE
  12. HALOBETASOL PROPIONATE. [Concomitant]
     Active Substance: HALOBETASOL PROPIONATE
  13. AMITRIPTYLINE [Concomitant]
     Active Substance: AMITRIPTYLINE
  14. FOLIC ACID. [Concomitant]
     Active Substance: FOLIC ACID
  15. GABAPENTIN. [Concomitant]
     Active Substance: GABAPENTIN
  16. ZYRTEC [Concomitant]
     Active Substance: CETIRIZINE HYDROCHLORIDE
  17. DUPIXENT [Suspect]
     Active Substance: DUPILUMAB
     Indication: DERMATITIS ATOPIC
     Dosage: 300 MG, QOW
     Route: 058
     Dates: start: 20190601
  18. PREMARIN [Concomitant]
     Active Substance: ESTROGENS, CONJUGATED
  19. FLUCONAZOLE. [Concomitant]
     Active Substance: FLUCONAZOLE
  20. ZINC SULFATE. [Concomitant]
     Active Substance: ZINC SULFATE
  21. HYDROXYZINE [Concomitant]
     Active Substance: HYDROXYZINE HYDROCHLORIDE
  22. AZATHIOPRINE. [Concomitant]
     Active Substance: AZATHIOPRINE

REACTIONS (3)
  - Nodule [Unknown]
  - Contusion [Unknown]
  - Condition aggravated [Unknown]

NARRATIVE: CASE EVENT DATE: 2019
